FAERS Safety Report 7504290-8 (Version None)
Quarter: 2011Q2

REPORT INFORMATION
  Report Type: 
  Country: None (occurrence: None)
  Receive Date: 20110404
  Receipt Date: 20101006
  Transmission Date: 20111010
  Serious: Yes (Other)
  Sender: FDA-Public Use
  Company Number: 011410

PATIENT

DRUGS (3)
  1. CYTOXAN [Concomitant]
  2. BUSULFEX [Suspect]
     Indication: BONE MARROW CONDITIONING REGIMEN
     Dosage: 1 MG/KG, Q6HR
  3. FLUDARABINE (FLUDARABINE) [Concomitant]

REACTIONS (1)
  - STOMATITIS [None]
